FAERS Safety Report 7021681-2 (Version None)
Quarter: 2010Q3

REPORT INFORMATION
  Report Type: 
  Country: None (occurrence: None)
  Receive Date: 20100928
  Receipt Date: 20100922
  Transmission Date: 20110219
  Serious: Yes (Life-Threatening, Hospitalization)
  Sender: FDA-Public Use
  Company Number: WAES 1009FRA00073

PATIENT
  Age: 55 Year
  Sex: Female

DRUGS (10)
  1. TAB RALTEGRAVIR POTASSIUM [Suspect]
     Indication: HIV INFECTION
     Dosage: 400 MG/BID; PO
     Route: 048
     Dates: start: 20100803, end: 20100920
  2. ASPIRIN [Concomitant]
  3. ATORVASTATIN CALCIUM [Concomitant]
  4. CHONDROITIN SULFATE SODIUM [Concomitant]
  5. ISONIAZID [Concomitant]
  6. LAMIVUDINE [Concomitant]
  7. LANSOPRAZOLE [Concomitant]
  8. RIFAMPIN [Concomitant]
  9. TENOFOVIR [Concomitant]
  10. TRAMADOL HCL [Concomitant]

REACTIONS (2)
  - HEPATIC NECROSIS [None]
  - HEPATITIS FULMINANT [None]
